FAERS Safety Report 17699210 (Version 3)
Quarter: 2020Q2

REPORT INFORMATION
  Report Type: Spontaneous
  Country: US (occurrence: US)
  Receive Date: 20200423
  Receipt Date: 20200617
  Transmission Date: 20200714
  Serious: No
  Sender: FDA-Public Use
  Company Number: US-VERTEX PHARMACEUTICALS-2020-009097

PATIENT
  Age: 30 Year
  Sex: Female

DRUGS (14)
  1. ALBUTEROL HFA [Concomitant]
     Active Substance: ALBUTEROL SULFATE
  2. AZITHROMYCIN ANHYDROUS. [Concomitant]
     Active Substance: AZITHROMYCIN ANHYDROUS
     Dosage: THRICE A WEEK
  3. HYPERSAL [Concomitant]
     Active Substance: SODIUM CHLORIDE
  4. LORATADINE. [Concomitant]
     Active Substance: LORATADINE
  5. DORNASE ALFA. [Concomitant]
     Active Substance: DORNASE ALFA
  6. CAYSTON [Concomitant]
     Active Substance: AZTREONAM
  7. CREON [Concomitant]
     Active Substance: PANCRELIPASE AMYLASE\PANCRELIPASE LIPASE\PANCRELIPASE PROTEASE
     Dosage: 3 WITH MEALS, 2 WITH SNACKS
  8. TOBRAMYCIN. [Concomitant]
     Active Substance: TOBRAMYCIN
     Route: 045
  9. LISPRO INSULIN [Concomitant]
     Active Substance: INSULIN LISPRO
  10. NASONEX [Concomitant]
     Active Substance: MOMETASONE FUROATE
  11. PREVACID [Concomitant]
     Active Substance: LANSOPRAZOLE
  12. TRIKAFTA [Suspect]
     Active Substance: ELEXACAFTOR\IVACAFTOR\TEZACAFTOR
     Indication: CYSTIC FIBROSIS
     Dosage: 100 MG ELEXACAFTOR/50 MG TEZACAFTOR/ 75 MG IVACAFTOR, BID
     Route: 048
     Dates: start: 202002
  13. LANTUS [Concomitant]
     Active Substance: INSULIN GLARGINE
  14. XULANE [Concomitant]
     Active Substance: ETHINYL ESTRADIOL\NORELGESTROMIN

REACTIONS (2)
  - Abdominal discomfort [Recovering/Resolving]
  - Diarrhoea [Recovering/Resolving]

NARRATIVE: CASE EVENT DATE: 202002
